FAERS Safety Report 16759192 (Version 1)
Quarter: 2019Q3

REPORT INFORMATION
  Report Type: Other
  Country: PK (occurrence: PK)
  Receive Date: 20190830
  Receipt Date: 20190830
  Transmission Date: 20191005
  Serious: Yes (Other)
  Sender: FDA-Public Use
  Company Number: PK-ATLAS PHARMACEUTICALS, LLC-2073862

PATIENT
  Age: 3 Decade
  Sex: Female

DRUGS (1)
  1. METFORMIN [Suspect]
     Active Substance: METFORMIN HYDROCHLORIDE
     Indication: POLYCYSTIC OVARIES
     Route: 065

REACTIONS (13)
  - Menorrhagia [Unknown]
  - Axillary pain [Recovering/Resolving]
  - Therapeutic product cross-reactivity [Unknown]
  - Hyperuricaemia [Recovering/Resolving]
  - Cluster headache [Unknown]
  - Palpitations [Unknown]
  - Breast tenderness [Unknown]
  - Pain [Recovering/Resolving]
  - Off label use [Unknown]
  - Mood altered [Recovered/Resolved]
  - Pharyngitis [Recovering/Resolving]
  - Rheumatic fever [Recovering/Resolving]
  - Sinusitis [Unknown]
